FAERS Safety Report 8162887-9 (Version None)
Quarter: 2012Q1

REPORT INFORMATION
  Report Type: 
  Country: None (occurrence: None)
  Receive Date: 20120224
  Receipt Date: 20120215
  Transmission Date: 20120608
  Serious: Yes (Death, Hospitalization)
  Sender: FDA-Public Use
  Company Number: JP-MILLENNIUM PHARMACEUTICALS, INC.-2011-06480

PATIENT

DRUGS (3)
  1. DEXAMETHASONE [Concomitant]
     Dosage: 20 MG, UNK
     Route: 048
     Dates: start: 20100302, end: 20111202
  2. VELCADE [Suspect]
     Indication: MULTIPLE MYELOMA
     Dosage: 1.3 MG/M2, CYCLIC
     Route: 042
     Dates: start: 20100302, end: 20111202
  3. DEXAMETHASONE [Concomitant]
     Dosage: 3.3 MG, UNK
     Route: 042
     Dates: start: 20110302, end: 20111202

REACTIONS (3)
  - ENCEPHALITIS HERPES [None]
  - MENINGITIS [None]
  - MULTI-ORGAN FAILURE [None]
